FAERS Safety Report 4322346-8 (Version None)
Quarter: 2004Q1

REPORT INFORMATION
  Report Type: 
  Country: None (occurrence: None)
  Receive Date: 20040319
  Receipt Date: 20040305
  Transmission Date: 20041129
  Serious: Yes (Other)
  Sender: FDA-Public Use
  Company Number: 2004015659

PATIENT
  Age: 39 Year
  Sex: Male

DRUGS (2)
  1. VIAGRA [Suspect]
     Indication: ILL-DEFINED DISORDER
     Dosage: 80 MG, ORAL
     Route: 048
  2. NIFEDIPINE [Concomitant]

REACTIONS (5)
  - BRAIN STEM INFARCTION [None]
  - CEREBRAL THROMBOSIS [None]
  - HEMIPLEGIA [None]
  - SENSORY DISTURBANCE [None]
  - TRANSIENT ISCHAEMIC ATTACK [None]
